FAERS Safety Report 5533969-2 (Version None)
Quarter: 2007Q4

REPORT INFORMATION
  Report Type: 
  Country: None (occurrence: None)
  Receive Date: 20071129
  Receipt Date: 20071126
  Transmission Date: 20080405
  Serious: Yes (Life-Threatening, Hospitalization)
  Sender: FDA-Public Use
  Company Number: GXKR2007DE09253

PATIENT
  Age: 69 Year
  Sex: Male

DRUGS (5)
  1. RAMIPRIL/HCT (NGX)(HYDROCHLOROTHIAZIDE RAMIPRIL) UNKNOWN [Suspect]
     Indication: HYPERTENSION
     Dosage: 10/25 MG DAILY, ORAL
     Route: 048
     Dates: start: 20061001
  2. ESTRACYT /SCH/(ESTRAMUSTINE PHOSPHATE) [Suspect]
     Indication: PROSTATE CANCER
     Dates: start: 20070815, end: 20070911
  3. BISOPROLOL FUMARATE [Concomitant]
  4. ACETYLSALICYLIC ACID SRT [Concomitant]
  5. AMLODIPINE [Concomitant]

REACTIONS (3)
  - ANGIOEDEMA [None]
  - DYSPNOEA [None]
  - LARYNGEAL OEDEMA [None]
